FAERS Safety Report 24898705 (Version 1)
Quarter: 2025Q1

REPORT INFORMATION
  Report Type: Spontaneous
  Country: US (occurrence: US)
  Receive Date: 20250129
  Receipt Date: 20250129
  Transmission Date: 20250409
  Serious: Yes (Hospitalization, Other)
  Sender: AMGEN
  Company Number: US-AMGEN-USASP2025012168

PATIENT
  Age: 74 Year
  Sex: Male
  Weight: 68 kg

DRUGS (7)
  1. FILGRASTIM [Suspect]
     Active Substance: FILGRASTIM
     Indication: Agranulocytosis
     Dosage: 300 MICROGRAM, QD (4.5 UG/KG/DAY)
     Route: 058
  2. FILGRASTIM [Suspect]
     Active Substance: FILGRASTIM
     Indication: Off label use
  3. CIPROFLOXACIN [Concomitant]
     Active Substance: CIPROFLOXACIN
     Dosage: 500 MILLIGRAM, Q12H (EVERY 12 HOURS)
     Route: 048
  4. GENTAMICIN [Concomitant]
     Active Substance: GENTAMICIN
     Dosage: 70 MILLIGRAM, Q8H (EVERY 8 HOURS)
     Route: 040
  5. Ticarcillin and clavulanic acid [Concomitant]
     Dosage: 3.1 GRAM, Q6H (EVERY 6 HOURS)
     Route: 040
  6. FLUCONAZOLE [Concomitant]
     Active Substance: FLUCONAZOLE
     Dosage: 100 MILLIGRAM, QD
     Route: 048
  7. AMOXICILLIN\CLAVULANIC ACID [Concomitant]
     Active Substance: AMOXICILLIN\CLAVULANIC ACID
     Dosage: 875 MILLIGRAM, Q12H
     Route: 048

REACTIONS (5)
  - Pneumonia [Unknown]
  - Neutrophil count decreased [Recovered/Resolved]
  - Oral candidiasis [Unknown]
  - Off label use [Unknown]
  - White blood cell count increased [Unknown]
